FAERS Safety Report 20430281 (Version 1)
Quarter: 2022Q1

REPORT INFORMATION
  Report Type: Report from Study
  Country: FR (occurrence: FR)
  Receive Date: 20220204
  Receipt Date: 20220204
  Transmission Date: 20220423
  Serious: Yes (Hospitalization)
  Sender: FDA-Public Use
  Company Number: FR-SERVIER-S20005411

PATIENT

DRUGS (10)
  1. ONCASPAR [Suspect]
     Active Substance: PEGASPARGASE
     Indication: Acute lymphocytic leukaemia
     Dosage: 1500 IU (2500 IU/MM2), D4
     Route: 042
     Dates: start: 20190912, end: 20190912
  2. VINCRISTINE SULFATE [Suspect]
     Active Substance: VINCRISTINE SULFATE
     Indication: Acute lymphocytic leukaemia
     Dosage: 1 MG, ON DAYS D1, D8, D15 AND D22
     Route: 042
     Dates: start: 20190909, end: 20190930
  3. ADRIAMYCIN [Suspect]
     Active Substance: DOXORUBICIN HYDROCHLORIDE
     Indication: Acute lymphocytic leukaemia
     Dosage: 19 MG, ON DAYS D1, D8, D15 AND D22
     Route: 042
     Dates: start: 20190909, end: 20190930
  4. DEXAMETHASONE SODIUM PHOSPHATE [Suspect]
     Active Substance: DEXAMETHASONE SODIUM PHOSPHATE
     Indication: Acute lymphocytic leukaemia
     Dosage: 6 MG, ON DAYS D1, D7, D15 AND D21
     Route: 048
     Dates: start: 20190909, end: 20190929
  5. METHOTREXATE [Suspect]
     Active Substance: METHOTREXATE
     Indication: Acute lymphocytic leukaemia
     Dosage: 10 MG, ON DAYS D4 AND D31
     Route: 037
     Dates: start: 20190912, end: 20191009
  6. CYTARABINE [Suspect]
     Active Substance: CYTARABINE
     Indication: Acute lymphocytic leukaemia
     Dosage: 25 MG, ON DAYS D4 AND D31
     Route: 037
     Dates: start: 20190912, end: 20191009
  7. CYTARABINE [Suspect]
     Active Substance: CYTARABINE
     Dosage: 47 MG, ON DAYS D31-D34 AND D38-D41
     Route: 042
     Dates: start: 20191009, end: 20191019
  8. HYDROCORTISONE [Suspect]
     Active Substance: HYDROCORTISONE
     Indication: Acute lymphocytic leukaemia
     Dosage: 12.5 MG, ON DAYS D4 AND D31
     Route: 037
     Dates: start: 20190912, end: 20191009
  9. CYCLOPHOSPHAMIDE [Suspect]
     Active Substance: CYCLOPHOSPHAMIDE
     Indication: Acute lymphocytic leukaemia
     Dosage: 600 MG, ON DAY D29
     Route: 042
     Dates: start: 20191007, end: 20191007
  10. THIOGUANINE [Suspect]
     Active Substance: THIOGUANINE
     Indication: Acute lymphocytic leukaemia
     Dosage: 40 MG, ON DAYS D29-D42
     Route: 048
     Dates: start: 20191007, end: 20191020

REACTIONS (1)
  - Febrile bone marrow aplasia [Recovered/Resolved]

NARRATIVE: CASE EVENT DATE: 20191017
